FAERS Safety Report 19454087 (Version 2)
Quarter: 2021Q3

REPORT INFORMATION
  Report Type: Spontaneous
  Country: US (occurrence: US)
  Receive Date: 20210623
  Receipt Date: 20210727
  Transmission Date: 20211014
  Serious: No
  Sender: FDA-Public Use
  Company Number: US-PFIZER INC-2019033227

PATIENT
  Age: 16 Year
  Sex: Male
  Weight: 33.57 kg

DRUGS (1)
  1. GENOTROPIN [Suspect]
     Active Substance: SOMATROPIN
     Indication: SHORT STATURE
     Dosage: 1.0MG AND 1.2MG, ALTERNATING EVERY OTHER DAY, USES IT EVERY NIGHT
     Dates: start: 201811

REACTIONS (2)
  - Device power source issue [Unknown]
  - Drug dose omission by device [Unknown]
